FAERS Safety Report 4744724-5 (Version None)
Quarter: 2005Q3

REPORT INFORMATION
  Report Type: 
  Country: None (occurrence: None)
  Receive Date: 20050815
  Receipt Date: 20050801
  Transmission Date: 20060218
  Serious: Yes (Hospitalization)
  Sender: FDA-Public Use
  Company Number: 2005AP04168

PATIENT
  Age: 82 Year
  Sex: Female

DRUGS (2)
  1. ATENOLOL [Suspect]
     Indication: HYPERTENSION
     Dosage: SEVERAL YEARS
     Route: 048
  2. NIFEDIPINE [Concomitant]
     Indication: HYPERTENSION

REACTIONS (13)
  - ANAEMIA [None]
  - ANURIA [None]
  - BRADYARRHYTHMIA [None]
  - CARDIAC FAILURE ACUTE [None]
  - CARDIOMEGALY [None]
  - DIALYSIS [None]
  - METABOLIC ACIDOSIS [None]
  - NODAL RHYTHM [None]
  - PLEURAL EFFUSION [None]
  - PULMONARY CONGESTION [None]
  - RENAL IMPAIRMENT [None]
  - RESPIRATORY DISORDER [None]
  - THERAPEUTIC AGENT TOXICITY [None]
